FAERS Safety Report 12863867 (Version 2)
Quarter: 2016Q4

REPORT INFORMATION
  Report Type: Spontaneous
  Country: MY (occurrence: MY)
  Receive Date: 20161019
  Receipt Date: 20161128
  Transmission Date: 20170207
  Serious: Yes (Other)
  Sender: FDA-Public Use
  Company Number: ALCN2016MY006749

PATIENT
  Age: 57 Year
  Sex: Female

DRUGS (1)
  1. SYSTANE ULTRA [Suspect]
     Active Substance: POLYETHYLENE GLYCOL 400\PROPYLENE GLYCOL
     Indication: DRY EYE
     Dosage: 1 GTT, QID (3-4 TIMES A DAY)
     Route: 047
     Dates: start: 20161001, end: 20161002

REACTIONS (5)
  - Product odour abnormal [Unknown]
  - Eye swelling [Not Recovered/Not Resolved]
  - Ocular hyperaemia [Not Recovered/Not Resolved]
  - Eye pain [Recovered/Resolved with Sequelae]
  - Influenza [Recovering/Resolving]

NARRATIVE: CASE EVENT DATE: 20161001
